FAERS Safety Report 6476030-5 (Version None)
Quarter: 2009Q4

REPORT INFORMATION
  Report Type: 
  Country: None (occurrence: None)
  Receive Date: 20091119
  Receipt Date: 20090827
  Transmission Date: 20100525
  Serious: Yes (Other)
  Sender: FDA-Public Use
  Company Number: 2009SP022906

PATIENT
  Age: 38 Year
  Sex: Female
  Weight: 53 kg

DRUGS (1)
  1. IMPLANON [Suspect]
     Indication: CONTRACEPTION
     Dosage: 68 MG; SBDE
     Route: 059
     Dates: start: 20090612, end: 20090731

REACTIONS (2)
  - LIP PAIN [None]
  - LIP SWELLING [None]
